FAERS Safety Report 9076143 (Version 1)
Quarter: 2013Q1

REPORT INFORMATION
  Report Type: Report from Study
  Country: US (occurrence: US)
  Receive Date: 20130129
  Receipt Date: 20130129
  Transmission Date: 20140127
  Serious: Yes (Hospitalization)
  Sender: FDA-Public Use
  Company Number: US-ABBOTT-12P-163-0916843-00

PATIENT
  Sex: Female
  Weight: 52.21 kg

DRUGS (6)
  1. HUMIRA 40 MG/0.8 ML PEN [Suspect]
     Indication: RHEUMATOID ARTHRITIS
     Dates: start: 200907
  2. NORVASC [Concomitant]
     Indication: BLOOD PRESSURE
  3. BENICAR [Concomitant]
     Indication: BLOOD PRESSURE
  4. SYNTHROID [Concomitant]
     Indication: THYROID DISORDER
  5. ULTRAM [Concomitant]
     Indication: PAIN
     Dosage: AT BEDTIME
  6. TYLENOL [Concomitant]
     Indication: PAIN
     Dosage: AT BEDTIME

REACTIONS (7)
  - Pneumonia [Not Recovered/Not Resolved]
  - Colitis microscopic [Unknown]
  - Upper respiratory tract infection [Unknown]
  - Cheilitis [Recovered/Resolved]
  - Diarrhoea [Not Recovered/Not Resolved]
  - Nausea [Not Recovered/Not Resolved]
  - Urinary tract infection [Unknown]
